FAERS Safety Report 16187553 (Version 1)
Quarter: 2019Q2

REPORT INFORMATION
  Report Type: Spontaneous
  Country: HU (occurrence: HU)
  Receive Date: 20190412
  Receipt Date: 20190412
  Transmission Date: 20190711
  Serious: Yes (Hospitalization)
  Sender: FDA-Public Use
  Company Number: HU-ROCHE-2297529

PATIENT
  Age: 67 Year
  Sex: Female

DRUGS (5)
  1. ZELBORAF [Suspect]
     Active Substance: VEMURAFENIB
     Indication: METASTATIC MALIGNANT MELANOMA
     Route: 048
     Dates: start: 20180921, end: 2018
  2. COTELLIC [Concomitant]
     Active Substance: COBIMETINIB
     Indication: METASTATIC MALIGNANT MELANOMA
     Dosage: ONE CYCLE: 20 MG THREE TIMES DAILY FOR THREE WEEKS, FOLLOWED BY ONE WEEK PAUSE
     Route: 048
  3. DALNESSA [Concomitant]
     Indication: HYPERTENSION
     Route: 048
  4. FRONTIN [Concomitant]
     Active Substance: ALPRAZOLAM
     Route: 048
  5. APO-FAMOTIDIN [Concomitant]
     Route: 048

REACTIONS (4)
  - Rash [Recovered/Resolved]
  - Amylase increased [Recovered/Resolved]
  - Lipase increased [Recovered/Resolved]
  - White blood cell count decreased [Recovered/Resolved]

NARRATIVE: CASE EVENT DATE: 20180924
